FAERS Safety Report 4388945-2 (Version None)
Quarter: 2004Q2

REPORT INFORMATION
  Report Type: 
  Country: None (occurrence: None)
  Receive Date: 20040628
  Receipt Date: 20040611
  Transmission Date: 20050107
  Serious: Yes (Death, Life-Threatening)
  Sender: FDA-Public Use
  Company Number: A03200401881

PATIENT
  Age: 17 Year
  Sex: Female
  Weight: 55 kg

DRUGS (20)
  1. ELITEK [Suspect]
     Indication: HYPERURICAEMIA
     Dosage: 6 MG ONCE-INTRAVENOUS NOS
     Route: 042
     Dates: start: 20040319, end: 20040319
  2. DOPAMINE HCL [Concomitant]
  3. LIDOCAINE [Concomitant]
  4. PHENYTOIN [Concomitant]
  5. FOSPHENYTOIN SODIUM [Concomitant]
  6. SIROLIMUS [Concomitant]
  7. MIDAZOLAM HCL [Concomitant]
  8. FENTANYL [Concomitant]
  9. LORAZEPAM [Concomitant]
  10. EPINEPHRINE [Concomitant]
  11. ALLOPURINOL [Concomitant]
  12. FUROSEMIDE [Concomitant]
  13. VITAMIN K TAB [Concomitant]
  14. INSULIN [Concomitant]
  15. PANTOPRAZOLE [Concomitant]
  16. DOBUTAMINE [Concomitant]
  17. PHENYLEPHRINE [Concomitant]
  18. MILRINONE [Concomitant]
  19. TACROLIMUS [Concomitant]
  20. ACETAMINOPHEN [Concomitant]

REACTIONS (3)
  - ACQUIRED METHAEMOGLOBINAEMIA [None]
  - CARDIAC ARREST [None]
  - MYOCARDIAL INFARCTION [None]
